FAERS Safety Report 19385808 (Version 1)
Quarter: 2021Q2

REPORT INFORMATION
  Report Type: Spontaneous
  Country: US (occurrence: US)
  Receive Date: 20210607
  Receipt Date: 20210607
  Transmission Date: 20210717
  Serious: No
  Sender: FDA-Public Use
  Company Number: US-PERRIGO-20US014574

PATIENT
  Sex: Male

DRUGS (1)
  1. MINOXIDIL. [Suspect]
     Active Substance: MINOXIDIL
     Indication: PRODUCT USED FOR UNKNOWN INDICATION
     Dosage: UNKNOWN, UNKNOWN
     Route: 061
     Dates: start: 202010

REACTIONS (1)
  - Rash [Unknown]

NARRATIVE: CASE EVENT DATE: 202010
